FAERS Safety Report 5340342-9 (Version None)
Quarter: 2007Q2

REPORT INFORMATION
  Report Type: 
  Country: None (occurrence: None)
  Receive Date: 20070405
  Receipt Date: 20070103
  Transmission Date: 20071010
  Serious: No
  Sender: FDA-Public Use
  Company Number: US200701000376

PATIENT
  Age: 56 Year
  Sex: Female

DRUGS (4)
  1. CYMBALTA [Suspect]
     Indication: ANXIETY
     Dosage: SEE IMAGE
     Route: 048
     Dates: start: 20061216
  2. TENORMIN /NEZ/ (ATENOLOL) [Concomitant]
  3. LOTREL [Concomitant]
  4. NEXIUM /UNK/ (ESOMEPRAZOLE) [Concomitant]

REACTIONS (5)
  - FEELING ABNORMAL [None]
  - HEAD TITUBATION [None]
  - HEADACHE [None]
  - SLEEP DISORDER [None]
  - TREMOR [None]
